FAERS Safety Report 23810009 (Version 1)
Quarter: 2024Q2

REPORT INFORMATION
  Report Type: Spontaneous
  Country: NZ (occurrence: None)
  Receive Date: 20240502
  Receipt Date: 20240502
  Transmission Date: 20240715
  Serious: Yes (Life-Threatening, Other)
  Sender: FDA-Public Use
  Company Number: 2024A099299

PATIENT
  Age: 69 Year
  Sex: Female

DRUGS (5)
  1. TAGRISSO [Suspect]
     Active Substance: OSIMERTINIB
     Route: 048
  2. ERGOCALCIFEROL [Suspect]
     Active Substance: ERGOCALCIFEROL
  3. DOMPERIDONE [Concomitant]
     Active Substance: DOMPERIDONE
  4. MIDAZOLAM [Concomitant]
     Active Substance: MIDAZOLAM
  5. RIVAROXABAN [Concomitant]
     Active Substance: RIVAROXABAN

REACTIONS (2)
  - Respiratory failure [Unknown]
  - Pneumonitis [Unknown]
